FAERS Safety Report 6187121-0 (Version None)
Quarter: 2009Q2

REPORT INFORMATION
  Report Type: 
  Country: None (occurrence: None)
  Receive Date: 20090512
  Receipt Date: 20090501
  Transmission Date: 20091009
  Serious: Yes (Hospitalization, Other)
  Sender: FDA-Public Use
  Company Number: US-PFIZER INC-2009182099

PATIENT
  Sex: Female

DRUGS (3)
  1. NARDIL [Suspect]
     Indication: PANIC ATTACK
     Dosage: 15 MG, 3X/DAY
     Dates: start: 19780101, end: 20090411
  2. NARDIL [Suspect]
     Indication: ANXIETY
  3. CHLORDIAZEPOXIDE [Concomitant]
     Dosage: UNK

REACTIONS (4)
  - ANOREXIA [None]
  - FALL [None]
  - UPPER LIMB FRACTURE [None]
  - WEIGHT DECREASED [None]
